FAERS Safety Report 4266337-4 (Version None)
Quarter: 2004Q1

REPORT INFORMATION
  Report Type: 
  Country: None (occurrence: None)
  Receive Date: 20040106
  Receipt Date: 20031224
  Transmission Date: 20041129
  Serious: Yes (Hospitalization)
  Sender: FDA-Public Use
  Company Number: 2003117894

PATIENT
  Age: 63 Year
  Sex: Male
  Weight: 68 kg

DRUGS (5)
  1. VIAGRA [Suspect]
     Indication: ERECTILE DYSFUNCTION
     Dosage: 50 MG (PRN), ORAL
     Route: 048
     Dates: start: 20020501
  2. ANAESTHETICS, LOCAL [Suspect]
     Indication: TOOTH EXTRACTION
     Dates: start: 20030101, end: 20030101
  3. ATENOLOL [Concomitant]
  4. LOSARTAN POTASSIUM (LOSARTAN POTASSIUM) [Concomitant]
  5. ACETYLSALICYLIC ACID SRT [Concomitant]

REACTIONS (4)
  - ARRHYTHMIA [None]
  - HYPERTENSION [None]
  - PLATELET AGGREGATION [None]
  - TOOTH EXTRACTION [None]
